FAERS Safety Report 6391279-8 (Version None)
Quarter: 2009Q4

REPORT INFORMATION
  Report Type: 
  Country: None (occurrence: None)
  Receive Date: 20091006
  Receipt Date: 20091006
  Transmission Date: 20100525
  Serious: Yes (Other)
  Sender: FDA-Public Use
  Company Number: None

PATIENT
  Age: 66 Year
  Sex: Female
  Weight: 54.4316 kg

DRUGS (2)
  1. BONIVA [Suspect]
     Indication: FRACTURE
     Dosage: 150MG ONCE/MONTH BUCCAL
     Route: 002
     Dates: start: 20090801, end: 20090801
  2. BONIVA [Suspect]
     Indication: OSTEOPENIA
     Dosage: 150MG ONCE/MONTH BUCCAL
     Route: 002
     Dates: start: 20090801, end: 20090801

REACTIONS (16)
  - ABDOMINAL PAIN LOWER [None]
  - ABDOMINAL PAIN UPPER [None]
  - ARTHRALGIA [None]
  - BACK PAIN [None]
  - BONE PAIN [None]
  - DECREASED APPETITE [None]
  - DIARRHOEA [None]
  - DIZZINESS [None]
  - DYSPEPSIA [None]
  - GAIT DISTURBANCE [None]
  - INSOMNIA [None]
  - MUSCULOSKELETAL STIFFNESS [None]
  - MYALGIA [None]
  - NAUSEA [None]
  - NEURALGIA [None]
  - NO THERAPEUTIC RESPONSE [None]
